FAERS Safety Report 9269941 (Version 1)
Quarter: 2013Q2

REPORT INFORMATION
  Report Type: Report from Study
  Country: GB (occurrence: GB)
  Receive Date: 20130503
  Receipt Date: 20130503
  Transmission Date: 20140414
  Serious: Yes (Death)
  Sender: FDA-Public Use
  Company Number: GB-SANOFI-AVENTIS-2013SA044994

PATIENT
  Sex: 0

DRUGS (6)
  1. OXALIPLATIN [Suspect]
     Indication: GASTRIC CANCER
     Dosage: ON DAY 1
     Route: 042
  2. OXALIPLATIN [Suspect]
     Indication: OESOPHAGEAL CARCINOMA
     Dosage: ON DAY 1
     Route: 042
  3. EPIRUBICIN [Suspect]
     Indication: GASTRIC CANCER
     Dosage: ON DAY 1
     Route: 042
  4. EPIRUBICIN [Suspect]
     Indication: OESOPHAGEAL CARCINOMA
     Dosage: ON DAY 1
     Route: 042
  5. CAPECITABINE [Suspect]
     Indication: GASTRIC CANCER
     Dosage: ON DAYS 1-21
     Route: 048
  6. CAPECITABINE [Suspect]
     Indication: OESOPHAGEAL CARCINOMA
     Dosage: ON DAYS 1-21
     Route: 048

REACTIONS (2)
  - Diarrhoea [Fatal]
  - Dehydration [Fatal]
